FAERS Safety Report 8482558-9 (Version None)
Quarter: 2012Q3

REPORT INFORMATION
  Report Type: 
  Country: None (occurrence: None)
  Receive Date: 20120702
  Receipt Date: 20120623
  Transmission Date: 20120928
  Serious: Yes (Other)
  Sender: FDA-Public Use
  Company Number: US-ASTRAZENECA-2012SE43033

PATIENT

DRUGS (6)
  1. ALPRAZOLAM [Concomitant]
  2. TOPROL-XL [Suspect]
     Route: 048
  3. TOPROL-XL [Suspect]
     Route: 048
  4. METOPROLOL TARTRATE [Suspect]
     Route: 048
     Dates: start: 20100101
  5. BUSPIRONE HCL [Concomitant]
  6. CITALOPRAM HYDROBROMIDE [Concomitant]

REACTIONS (5)
  - PANIC ATTACK [None]
  - ADVERSE EVENT [None]
  - DRUG DOSE OMISSION [None]
  - BLOOD PRESSURE INCREASED [None]
  - DIZZINESS [None]
